FAERS Safety Report 6012592-X (Version None)
Quarter: 2008Q4

REPORT INFORMATION
  Report Type: 
  Country: None (occurrence: None)
  Receive Date: 20081217
  Receipt Date: 20081208
  Transmission Date: 20090506
  Serious: Yes (Other)
  Sender: FDA-Public Use
  Company Number: 2008SP024901

PATIENT
  Age: 50 Year
  Sex: Male

DRUGS (1)
  1. INTRON A [Suspect]
     Indication: MALIGNANT MELANOMA
     Dosage: 15 UNK;ONCE;IV
     Route: 042
     Dates: start: 20081101

REACTIONS (2)
  - ACUTE RESPIRATORY DISTRESS SYNDROME [None]
  - THERAPEUTIC AGENT TOXICITY [None]
